FAERS Safety Report 9282716 (Version 3)
Quarter: 2013Q2

REPORT INFORMATION
  Report Type: Spontaneous
  Country: IT (occurrence: IT)
  Receive Date: 20130510
  Receipt Date: 20130606
  Transmission Date: 20140414
  Serious: Yes (Hospitalization)
  Sender: FDA-Public Use
  Company Number: IT-BRISTOL-MYERS SQUIBB COMPANY-18859710

PATIENT
  Age: 85 Year
  Sex: Female

DRUGS (13)
  1. COUMADIN TABS 5 MG [Suspect]
     Dosage: INTERR:28APR2013
     Route: 048
     Dates: start: 20110101
  2. AMIODARONE [Concomitant]
  3. SIMVASTATIN [Concomitant]
  4. CARVEDILOL [Concomitant]
  5. CALCIUM-SANDOZ [Concomitant]
  6. TRIATEC [Concomitant]
  7. EUTIROX [Concomitant]
  8. NITRODERM TTS [Concomitant]
     Route: 062
  9. ALDACTONE [Concomitant]
  10. STILNOX [Concomitant]
  11. ESOPRAL [Concomitant]
  12. LASIX [Concomitant]
  13. LANOXIN [Concomitant]

REACTIONS (4)
  - Subcutaneous haematoma [Recovering/Resolving]
  - Fall [Recovering/Resolving]
  - Anaemia [Recovering/Resolving]
  - International normalised ratio increased [Recovering/Resolving]
